FAERS Safety Report 18924609 (Version 9)
Quarter: 2023Q1

REPORT INFORMATION
  Report Type: Spontaneous
  Country: US (occurrence: US)
  Receive Date: 20210222
  Receipt Date: 20230123
  Transmission Date: 20230418
  Serious: Yes (Other)
  Sender: FDA-Public Use
  Company Number: US-PFIZER INC-2021024765

PATIENT
  Age: 20 Year
  Sex: Male

DRUGS (5)
  1. XELJANZ [Suspect]
     Active Substance: TOFACITINIB CITRATE
     Indication: Colitis ulcerative
     Dosage: 10 MG, 2X/DAY
     Route: 048
     Dates: start: 20210107
  2. XELJANZ [Suspect]
     Active Substance: TOFACITINIB CITRATE
     Dosage: 10 MG
     Dates: start: 20211216
  3. PREDNISONE [Concomitant]
     Active Substance: PREDNISONE
     Dosage: UNK (TAPERED)
  4. COVID-19 VACCINE [Concomitant]
     Dosage: UNK
  5. VARICELLA-ZOSTER VIRUS STRAIN OKA/MERCK LIVE ANTIGEN [Concomitant]
     Active Substance: VARICELLA-ZOSTER VIRUS STRAIN OKA/MERCK LIVE ANTIGEN
     Dosage: UNK

REACTIONS (8)
  - Haematochezia [Unknown]
  - Pneumonia [Recovering/Resolving]
  - Depressed mood [Unknown]
  - Diarrhoea [Unknown]
  - COVID-19 [Unknown]
  - Inappropriate schedule of product administration [Unknown]
  - Blood potassium increased [Unknown]
  - Blood iron decreased [Unknown]
